FAERS Safety Report 18233577 (Version 1)
Quarter: 2020Q3

REPORT INFORMATION
  Report Type: Report from Study
  Country: US (occurrence: US)
  Receive Date: 20200904
  Receipt Date: 20200904
  Transmission Date: 20201103
  Serious: Yes (Hospitalization)
  Sender: FDA-Public Use
  Company Number: US-TAKEDA-2017TUS025228

PATIENT
  Age: 51 Year
  Sex: Female
  Weight: 49 kg

DRUGS (2)
  1. PONATINIB [Suspect]
     Active Substance: PONATINIB
     Dosage: 15 MILLIGRAM, QD
     Route: 048
     Dates: start: 201711
  2. PONATINIB [Suspect]
     Active Substance: PONATINIB
     Indication: ACUTE MYELOID LEUKAEMIA
     Dosage: 30 MILLIGRAM, QD
     Route: 048
     Dates: start: 20171116

REACTIONS (11)
  - Platelet count decreased [Unknown]
  - Full blood count increased [Recovering/Resolving]
  - Myeloblast count increased [Recovering/Resolving]
  - Haemoglobin decreased [Unknown]
  - Illness [Unknown]
  - Nervousness [Unknown]
  - Haemoglobin abnormal [Recovering/Resolving]
  - Hypoaesthesia [Not Recovered/Not Resolved]
  - White blood cell count decreased [Unknown]
  - Off label use [Unknown]
  - Paraesthesia [Unknown]

NARRATIVE: CASE EVENT DATE: 20171129
